FAERS Safety Report 4590069-6 (Version None)
Quarter: 2005Q1

REPORT INFORMATION
  Report Type: 
  Country: None (occurrence: None)
  Receive Date: 20050217
  Receipt Date: 20050208
  Transmission Date: 20050727
  Serious: Yes (Hospitalization)
  Sender: FDA-Public Use
  Company Number: 2005027230

PATIENT
  Age: 28 Year
  Sex: Male

DRUGS (3)
  1. MAGNEX                         (SULBACTAM, CEFOPERAZONE) [Suspect]
     Indication: POSTOPERATIVE CARE
     Dosage: 2 GRAM (1 GRAM, 2 IN 1 D), INTRAVENOUS
     Route: 042
  2. RANITIDINE HYDROCHLORIDE [Concomitant]
  3. PHENYTOIN SODIUM [Concomitant]

REACTIONS (3)
  - PERITONEAL DIALYSIS [None]
  - RENAL FAILURE ACUTE [None]
  - THROMBOCYTOPENIA [None]
